FAERS Safety Report 6141813-8 (Version None)
Quarter: 2009Q1

REPORT INFORMATION
  Report Type: 
  Country: None (occurrence: None)
  Receive Date: 20090331
  Receipt Date: 20090331
  Transmission Date: 20090719
  Serious: Yes (Hospitalization)
  Sender: FDA-Public Use
  Company Number: None

PATIENT
  Age: 59 Year
  Sex: Male
  Weight: 61.7 kg

DRUGS (9)
  1. THALIDOMIDE [Suspect]
     Indication: MANTLE CELL LYMPHOMA
     Dosage: 1/WEEK EXCEPT T-2X PO
     Route: 048
     Dates: start: 20041201
  2. PREDNISONE [Suspect]
     Indication: MANTLE CELL LYMPHOMA
     Dates: start: 20041201
  3. ETOPOSIDE [Suspect]
  4. PROCARBAZINE [Suspect]
  5. CYTOXAN [Suspect]
  6. RITUXIMAB [Suspect]
     Indication: MANTLE CELL LYMPHOMA
     Dosage: Q4 MONTHS IV DRIP
     Route: 041
     Dates: start: 20041201
  7. AMBIEN [Concomitant]
  8. NEXIUM [Concomitant]
  9. VALIUM [Concomitant]

REACTIONS (2)
  - LOBAR PNEUMONIA [None]
  - PNEUMONIA BACTERIAL [None]
